FAERS Safety Report 8820010 (Version 2)
Quarter: 2013Q1

REPORT INFORMATION
  Report Type: Report from Study
  Country: JP (occurrence: JP)
  Receive Date: 20121001
  Receipt Date: 20130212
  Transmission Date: 20140127
  Serious: Yes (Hospitalization)
  Sender: FDA-Public Use
  Company Number: JP-GILEAD-2012-0062059

PATIENT
  Age: 42 Year
  Sex: Male

DRUGS (31)
  1. EMTRICITABINE/TENOFOVIR DISOPROXIL FUMARATE [Suspect]
     Indication: HIV INFECTION
     Dosage: 1 DF, QD
     Route: 048
     Dates: start: 20110225
  2. NORVIR [Suspect]
     Indication: HIV INFECTION
     Dosage: 100 MG, QD
     Route: 048
     Dates: start: 20110225, end: 20110512
  3. NORVIR [Suspect]
     Dosage: UNK
     Dates: start: 20110513
  4. PREZISTA [Suspect]
     Indication: HIV INFECTION
     Dosage: 800 MG, QD
     Route: 048
     Dates: start: 20110225
  5. PREDONINE                          /00016201/ [Suspect]
     Indication: ATYPICAL MYCOBACTERIAL INFECTION
     Dosage: 30 MG, UNK
     Route: 048
     Dates: start: 20110309, end: 20110315
  6. PREDONINE                          /00016201/ [Suspect]
     Dosage: 15 MG, BID
     Route: 048
     Dates: start: 20110316, end: 20110321
  7. PREDONINE                          /00016201/ [Suspect]
     Dosage: 20 MG, BID
     Route: 048
     Dates: start: 20110322, end: 20110413
  8. PREDONINE                          /00016201/ [Suspect]
     Dosage: 17.5 MG, BID
     Route: 048
     Dates: start: 20110414, end: 20110427
  9. PREDONINE                          /00016201/ [Suspect]
     Dosage: 15 MG, BID
     Route: 048
     Dates: start: 20110428, end: 20110428
  10. PREDONINE                          /00016201/ [Suspect]
     Dosage: 12.5 MG, BID
     Route: 048
     Dates: start: 20110429, end: 20110706
  11. PREDONINE                          /00016201/ [Suspect]
     Dosage: 23 MG, QD
     Route: 048
     Dates: start: 20110707, end: 20110902
  12. PREDONINE                          /00016201/ [Suspect]
     Dosage: 22 MG, QD
     Route: 048
     Dates: start: 20110903, end: 20110909
  13. PREDONINE                          /00016201/ [Suspect]
     Dosage: 20 MG, QD
     Route: 048
     Dates: start: 20110910, end: 20111005
  14. PREDONINE                          /00016201/ [Suspect]
     Dosage: 15 MG, QD
     Route: 048
     Dates: start: 20111006, end: 20111125
  15. PREDONINE                          /00016201/ [Suspect]
     Dosage: 14 MG, QD
     Route: 048
     Dates: start: 20111126, end: 20111209
  16. PREDONINE                          /00016201/ [Suspect]
     Dosage: 13 MG, QD
     Route: 048
     Dates: start: 20111210, end: 20111227
  17. PREDONINE                          /00016201/ [Suspect]
     Dosage: 12 MG, QD
     Route: 048
     Dates: start: 20111228, end: 20120118
  18. PREDONINE                          /00016201/ [Suspect]
     Dosage: 10 MG, QD
     Route: 048
     Dates: start: 20120119, end: 20120208
  19. PREDONINE                          /00016201/ [Suspect]
     Dosage: 9 MG, QD
     Route: 048
     Dates: start: 20120209, end: 20120229
  20. PREDONINE                          /00016201/ [Suspect]
     Dosage: 8 MG, QD
     Route: 048
     Dates: start: 20120301, end: 20120330
  21. PREDONINE                          /00016201/ [Suspect]
     Dosage: 7 MG, QD
     Route: 048
     Dates: start: 20120331
  22. CIPROXAN                           /00697202/ [Concomitant]
     Dosage: UNK
     Dates: start: 20110127
  23. CLARITHROMYCIN [Concomitant]
     Dosage: UNK
     Dates: start: 20110127
  24. EBUTOL                             /00022301/ [Concomitant]
     Dosage: UNK
     Dates: start: 20110128
  25. FAMOTIDINE [Concomitant]
     Dosage: UNK
     Dates: start: 20110203
  26. MYCOBUTIN [Concomitant]
     Dosage: UNK
     Dates: start: 20110225
  27. VALIXA [Concomitant]
     Dosage: UNK
     Dates: start: 20110311, end: 20110402
  28. VALIXA [Concomitant]
     Dosage: UNK
     Dates: start: 20110415, end: 20110429
  29. VALIXA [Concomitant]
     Dosage: UNK
     Dates: start: 20110511, end: 20110525
  30. VALIXA [Concomitant]
     Dosage: UNK
     Dates: start: 20110526, end: 20110812
  31. VALIXA [Concomitant]
     Dosage: UNK
     Dates: start: 20110813, end: 20110816

REACTIONS (2)
  - Compression fracture [Recovered/Resolved]
  - Osteoporosis [Unknown]
